FAERS Safety Report 5409896-8 (Version None)
Quarter: 2007Q3

REPORT INFORMATION
  Report Type: 
  Country: None (occurrence: None)
  Receive Date: 20070809
  Receipt Date: 20070801
  Transmission Date: 20080115
  Serious: Yes (Other)
  Sender: FDA-Public Use
  Company Number: US-PFIZER INC-2007063938

PATIENT
  Sex: Female
  Weight: 63.636 kg

DRUGS (4)
  1. CELEBREX [Suspect]
     Indication: ARTHRITIS
     Route: 048
     Dates: start: 19970101, end: 20070101
  2. RELAFEN [Suspect]
     Indication: ARTHRITIS
     Route: 048
     Dates: start: 20070101, end: 20070101
  3. FOSAMAX [Concomitant]
  4. VITAMIN CAP [Concomitant]

REACTIONS (4)
  - ATRIAL FIBRILLATION [None]
  - BLOOD CHOLESTEROL INCREASED [None]
  - MYOCARDIAL INFARCTION [None]
  - PAIN [None]
